FAERS Safety Report 19146798 (Version 2)
Quarter: 2021Q3

REPORT INFORMATION
  Report Type: Spontaneous
  Country: US (occurrence: US)
  Receive Date: 20210416
  Receipt Date: 20210709
  Transmission Date: 20211014
  Serious: No
  Sender: FDA-Public Use
  Company Number: US-PFIZER INC-2021368263

PATIENT
  Age: 57 Year
  Sex: Female

DRUGS (3)
  1. ANASTRAZOLE DENK [Suspect]
     Active Substance: ANASTROZOLE
     Dosage: UNK
  2. IBRANCE [Suspect]
     Active Substance: PALBOCICLIB
     Indication: PLASMA CELL MYELOMA
     Dosage: 125 MG, CYCLIC (DAILY 21 DAYS ON, 7 DAYS OFF ON A 28 DAY CYCLE)
     Dates: start: 20210324
  3. IBRANCE [Suspect]
     Active Substance: PALBOCICLIB
     Indication: BREAST CANCER FEMALE

REACTIONS (9)
  - Micturition urgency [Unknown]
  - Bowel movement irregularity [Unknown]
  - Oral pain [Recovered/Resolved]
  - Insomnia [Unknown]
  - Constipation [Unknown]
  - Appetite disorder [Unknown]
  - Hot flush [Unknown]
  - Disease recurrence [Recovered/Resolved]
  - Fatigue [Unknown]

NARRATIVE: CASE EVENT DATE: 2021
